FAERS Safety Report 10223931 (Version 1)
Quarter: 2014Q2

REPORT INFORMATION
  Report Type: Spontaneous
  Country: NL (occurrence: CO)
  Receive Date: 20140609
  Receipt Date: 20140609
  Transmission Date: 20141212
  Serious: Yes (Other)
  Sender: FDA-Public Use
  Company Number: NL-BAYER-2014-085518

PATIENT
  Sex: Male

DRUGS (1)
  1. CARDIOASPIRINA [Suspect]
     Dosage: UNK
     Route: 048

REACTIONS (1)
  - Syncope [None]
